FAERS Safety Report 4537690-9 (Version None)
Quarter: 2005Q1

REPORT INFORMATION
  Report Type: 
  Country: None (occurrence: None)
  Receive Date: 20041216
  Receipt Date: 20031110
  Transmission Date: 20050727
  Serious: Yes (Other)
  Sender: FDA-Public Use
  Company Number: HQWYE933211NOV03

PATIENT
  Age: 52 Year
  Sex: Female

DRUGS (4)
  1. EFFEXOR XR [Suspect]
     Indication: DEPRESSION
     Dosage: 225MG (FREQUENCY NOT SPECIFIED), ORAL
     Route: 048
     Dates: start: 19990901
  2. UNSPECIFIED HORMONE REPLACEMENT THERAPY AGENT (UNSPECIFIED HORMONE REP [Concomitant]
  3. LEXAPRO [Concomitant]
  4. CONCERTA (METHYLPHENIDATE) [Concomitant]

REACTIONS (1)
  - PNEUMONIA [None]
